FAERS Safety Report 18539114 (Version 2)
Quarter: 2020Q4

REPORT INFORMATION
  Report Type: Report from Study
  Country: None (occurrence: US)
  Receive Date: 20201124
  Receipt Date: 20201125
  Transmission Date: 20210114
  Serious: Yes (Hospitalization)
  Sender: FDA-Public Use
  Company Number: US-ABBVIE-20K-163-3663826-00

PATIENT
  Sex: Female

DRUGS (1)
  1. IMBRUVICA [Suspect]
     Active Substance: IBRUTINIB
     Indication: CHRONIC LYMPHOCYTIC LEUKAEMIA
     Route: 048
     Dates: start: 20200902

REACTIONS (7)
  - Blood urine present [Unknown]
  - Headache [Unknown]
  - Adverse drug reaction [Unknown]
  - Lymphocyte count decreased [Unknown]
  - Amnesia [Unknown]
  - Blood pressure systolic increased [Unknown]
  - Haematoma [Unknown]

NARRATIVE: CASE EVENT DATE: 2020
